FAERS Safety Report 7152885-6 (Version None)
Quarter: 2010Q4

REPORT INFORMATION
  Report Type: 
  Country: None (occurrence: None)
  Receive Date: 20101209
  Receipt Date: 20101209
  Transmission Date: 20110411
  Serious: Yes (Other)
  Sender: FDA-Public Use
  Company Number: None

PATIENT
  Sex: Female
  Weight: 63.5036 kg

DRUGS (1)
  1. PROVIGIL [Suspect]
     Indication: FIBROMYALGIA
     Dosage: 200 MG 1 ONCE A DAY
     Dates: start: 20101019

REACTIONS (4)
  - ANXIETY [None]
  - HEADACHE [None]
  - IMPULSIVE BEHAVIOUR [None]
  - INSOMNIA [None]
